FAERS Safety Report 4719599-0 (Version None)
Quarter: 2005Q3

REPORT INFORMATION
  Report Type: 
  Country: None (occurrence: None)
  Receive Date: 20050721
  Receipt Date: 20040413
  Transmission Date: 20060218
  Serious: No
  Sender: FDA-Public Use
  Company Number: US-GLAXOSMITHKLINE-A0508176A

PATIENT
  Sex: Female
  Weight: 85.9 kg

DRUGS (18)
  1. AVANDIA [Suspect]
     Route: 048
     Dates: start: 20020218
  2. REGLAN [Suspect]
     Indication: DIABETIC GASTROPARESIS
     Dosage: 10MG FOUR TIMES PER DAY
     Route: 042
     Dates: start: 20020201
  3. NORVASC [Concomitant]
     Dosage: 10MG PER DAY
     Route: 048
  4. TOPROL-XL [Concomitant]
     Dosage: 200MG PER DAY
     Route: 048
  5. ZESTORETIC [Concomitant]
     Dosage: 20MG PER DAY
     Route: 048
  6. ADVAIR DISKUS 100/50 [Concomitant]
     Route: 055
  7. ALBUTEROL [Concomitant]
     Route: 055
  8. SINGULAIR [Concomitant]
     Dosage: 10MG AT NIGHT
     Route: 048
  9. ASPIRIN [Concomitant]
     Dosage: 81MG PER DAY
     Route: 048
  10. AMBIEN [Concomitant]
     Dosage: 10MG AT NIGHT
     Route: 048
  11. NITROGLYCERIN [Concomitant]
     Route: 061
  12. PRILOSEC [Concomitant]
     Dosage: 40MG PER DAY
     Route: 048
  13. HUMALOG MIX [Concomitant]
     Route: 058
     Dates: start: 20040303, end: 20040309
  14. LIPITOR [Concomitant]
     Dosage: 20MG AT NIGHT
     Route: 048
  15. PREMARIN [Concomitant]
     Dosage: .625MG PER DAY
     Route: 048
  16. ZESTRIL [Concomitant]
     Indication: DRUG USE FOR UNKNOWN INDICATION
     Dosage: 20MG IN THE MORNING
     Route: 048
  17. NITROSTAT [Concomitant]
     Indication: DRUG USE FOR UNKNOWN INDICATION
     Dosage: .4MG AS REQUIRED
     Route: 060
  18. MINOXIDIL [Concomitant]
     Indication: DRUG USE FOR UNKNOWN INDICATION
     Dosage: 2.5MG TWICE PER DAY
     Route: 048

REACTIONS (1)
  - ADVERSE EVENT [None]
